FAERS Safety Report 5491654-X (Version None)
Quarter: 2007Q4

REPORT INFORMATION
  Report Type: 
  Country: None (occurrence: None)
  Receive Date: 20071018
  Receipt Date: 20071018
  Transmission Date: 20080405
  Serious: Yes (Hospitalization)
  Sender: FDA-Public Use
  Company Number: None

PATIENT
  Age: 79 Year
  Sex: Male
  Weight: 77.8826 kg

DRUGS (8)
  1. GLEEVEC [Suspect]
     Indication: CHRONIC MYELOID LEUKAEMIA
     Dosage: 400MG DAILY PO
     Route: 048
     Dates: start: 20030610, end: 20071015
  2. ALBUTEROL [Concomitant]
  3. ALBUTEROL SULFATE AND IPRATROPIUM BROMIDE [Concomitant]
  4. AMIODARONE [Concomitant]
  5. HEPARIN [Concomitant]
  6. IPRATROPIUM BROMIDE [Concomitant]
  7. METOPROLOL [Concomitant]
  8. RANITIDINE [Concomitant]

REACTIONS (2)
  - ASCITES [None]
  - RENAL FAILURE [None]
